FAERS Safety Report 22898333 (Version 4)
Quarter: 2024Q2

REPORT INFORMATION
  Report Type: Spontaneous
  Country: US (occurrence: US)
  Receive Date: 20230903
  Receipt Date: 20240605
  Transmission Date: 20240716
  Serious: No
  Sender: FDA-Public Use
  Company Number: US-BRISTOL-MYERS SQUIBB COMPANY-2023-123969

PATIENT
  Age: 75 Year
  Sex: Male

DRUGS (1)
  1. ORENCIA [Suspect]
     Active Substance: ABATACEPT
     Indication: Product used for unknown indication
     Dosage: FREQ : EVERY 10 DAYS
     Route: 058

REACTIONS (3)
  - Off label use [Unknown]
  - Rash macular [Unknown]
  - Rash pruritic [Unknown]
